FAERS Safety Report 19771122 (Version 1)
Quarter: 2021Q3

REPORT INFORMATION
  Report Type: Spontaneous
  Country: CA (occurrence: CA)
  Receive Date: 20210901
  Receipt Date: 20210901
  Transmission Date: 20211014
  Serious: Yes (Hospitalization)
  Sender: FDA-Public Use
  Company Number: CA-ACCORD-236786

PATIENT
  Age: 13 Year
  Sex: Male
  Weight: 78 kg

DRUGS (11)
  1. TACROLIMUS. [Suspect]
     Active Substance: TACROLIMUS
     Indication: NEPHROTIC SYNDROME
     Dosage: 2 EVERY 1 DAYS
     Route: 048
  2. EPINEPHRINE. [Concomitant]
     Active Substance: EPINEPHRINE
  3. SULFAMETHOXAZOLE/TRIMETHOPRIM [Concomitant]
     Active Substance: SULFAMETHOXAZOLE\TRIMETHOPRIM
  4. PARACETAMOL [Concomitant]
     Active Substance: ACETAMINOPHEN
  5. HYDROCORTISONE. [Concomitant]
     Active Substance: HYDROCORTISONE
  6. NYSTATIN/NYSTATIN/LIPOSOME [Concomitant]
     Active Substance: NYSTATIN
  7. PREDNISONE. [Suspect]
     Active Substance: PREDNISONE
     Indication: NEPHROTIC SYNDROME
     Dosage: 1 EVERY 2 DAYS
     Route: 048
  8. CALCIUM [Concomitant]
     Active Substance: CALCIUM
  9. COLECALCIFEROL [Concomitant]
     Active Substance: CHOLECALCIFEROL
  10. DIPHENHYDRAMINE. [Concomitant]
     Active Substance: DIPHENHYDRAMINE
  11. LANSOPRAZOLE. [Concomitant]
     Active Substance: LANSOPRAZOLE

REACTIONS (8)
  - Dizziness [Recovered/Resolved]
  - Asthenia [Recovered/Resolved]
  - Off label use [Unknown]
  - Diabetes mellitus [Recovered/Resolved]
  - Diabetic ketoacidosis [Recovered/Resolved]
  - Headache [Recovered/Resolved]
  - Hyperglycaemia [Recovered/Resolved]
  - Vomiting [Recovered/Resolved]
